FAERS Safety Report 18095037 (Version 5)
Quarter: 2020Q4

REPORT INFORMATION
  Report Type: Spontaneous
  Country: PL (occurrence: PL)
  Receive Date: 20200731
  Receipt Date: 20201013
  Transmission Date: 20210113
  Serious: Yes (Other)
  Sender: FDA-Public Use
  Company Number: PL-AUROBINDO-AUR-APL-2020-037059

PATIENT
  Age: 67 Year
  Sex: Female

DRUGS (10)
  1. LETROZOLE. [Suspect]
     Active Substance: LETROZOLE
     Indication: BREAST CANCER METASTATIC
     Dosage: CONTINUOUS TREATMENT
     Route: 065
     Dates: start: 201811
  2. RIBOCICLIB. [Suspect]
     Active Substance: RIBOCICLIB
     Indication: HORMONE RECEPTOR POSITIVE BREAST CANCER
     Dosage: 1 DOSAGE FORM, (21 DAYS)
     Route: 065
     Dates: start: 201811
  3. RIBOCICLIB. [Suspect]
     Active Substance: RIBOCICLIB
     Indication: BREAST CANCER METASTATIC
     Dosage: UNK
     Route: 065
     Dates: start: 201911
  4. LETROZOLE. [Suspect]
     Active Substance: LETROZOLE
     Indication: BREAST CANCER
     Dosage: COMBINATION WITH ZOLEDRONIC ACID
     Route: 065
     Dates: start: 2018
  5. ZOLEDRONIC ACID CLARIS [Suspect]
     Active Substance: ZOLEDRONIC ACID
     Indication: ADJUVANT THERAPY
     Dosage: 1 DOSAGE FORM, (3 MONTH)
     Route: 065
  6. LETROZOLE. [Suspect]
     Active Substance: LETROZOLE
     Indication: HORMONE RECEPTOR POSITIVE BREAST CANCER
     Dosage: 2.5 MILLIGRAM, ONCE A DAY, (COMBINATION WITH RIBOCICLIB)
     Route: 065
     Dates: start: 201811
  7. LETROZOLE. [Suspect]
     Active Substance: LETROZOLE
     Dosage: UNK
     Route: 065
     Dates: start: 201911
  8. ZOLEDRONIC ACID CLARIS [Suspect]
     Active Substance: ZOLEDRONIC ACID
     Indication: BREAST CANCER METASTATIC
  9. RIBOCICLIB. [Suspect]
     Active Substance: RIBOCICLIB
     Indication: BREAST CANCER
     Dosage: 600 MILLIGRAM, ONCE A DAY,(IN THE 21 LONG CYCLE, 7 DAYS OF BREAK)
     Route: 065
     Dates: start: 201811
  10. ZOLEDRONIC ACID CLARIS [Suspect]
     Active Substance: ZOLEDRONIC ACID
     Indication: BREAST CANCER
     Dosage: UNK UNK, EVERY 3 MONTHS
     Route: 065
     Dates: start: 201811

REACTIONS (4)
  - Neutropenia [Recovered/Resolved]
  - Pruritus [Unknown]
  - Haematotoxicity [Unknown]
  - Hepatotoxicity [Recovered/Resolved]

NARRATIVE: CASE EVENT DATE: 2018
